FAERS Safety Report 5891948-X (Version None)
Quarter: 2008Q3

REPORT INFORMATION
  Report Type: 
  Country: None (occurrence: None)
  Receive Date: 20080918
  Receipt Date: 20080908
  Transmission Date: 20090109
  Serious: Yes (Hospitalization)
  Sender: FDA-Public Use
  Company Number: 2008US002343

PATIENT
  Age: 56 Year
  Sex: Male
  Weight: 92 kg

DRUGS (10)
  1. AMBISOME [Suspect]
     Indication: LIVER ABSCESS
     Dosage: 250 MG, IV NOS
     Route: 042
     Dates: start: 20080425, end: 20080801
  2. PROGRAF [Suspect]
     Indication: DRUG USE FOR UNKNOWN INDICATION
  3. ALENDRONIC ACID (ALENDRONIC ACID) [Concomitant]
  4. ANTIBIOTICS [Concomitant]
  5. CALCICHEW (CALCIUM) [Concomitant]
  6. ENOXAPARIN SODIUM [Concomitant]
  7. HYDROCORTISONE (HYDROCORTISONE ACETATE) [Concomitant]
  8. METRONIDAZOLE (METRONIDAZOLE SODIUM) [Concomitant]
  9. PRAVASTATIN [Concomitant]
  10. TIGECYCLINE (TIGECYCLINE) [Concomitant]

REACTIONS (3)
  - BLOOD ALKALINE PHOSPHATASE INCREASED [None]
  - LEFT VENTRICULAR DYSFUNCTION [None]
  - MYOCARDITIS [None]
